FAERS Safety Report 10498327 (Version 1)
Quarter: 2014Q4

REPORT INFORMATION
  Report Type: Spontaneous
  Country: US (occurrence: None)
  Receive Date: 20141003
  Receipt Date: 20141003
  Transmission Date: 20150528
  Serious: Yes (Hospitalization)
  Sender: FDA-Public Use
  Company Number: None

PATIENT
  Age: 62 Year
  Sex: Male
  Weight: 66.9 kg

DRUGS (2)
  1. ERBITUX [Suspect]
     Active Substance: CETUXIMAB
  2. TAXOTERE [Suspect]
     Active Substance: DOCETAXEL

REACTIONS (4)
  - Pain [None]
  - Mucosal inflammation [None]
  - Dehydration [None]
  - Haemorrhage [None]

NARRATIVE: CASE EVENT DATE: 20140922
